FAERS Safety Report 22193453 (Version 5)
Quarter: 2025Q2

REPORT INFORMATION
  Report Type: Report from Study
  Country: US (occurrence: US)
  Receive Date: 20230410
  Receipt Date: 20250410
  Transmission Date: 20250717
  Serious: Yes (Hospitalization, Other)
  Sender: TAKEDA
  Company Number: US-TAKEDA-2023TUS033173

PATIENT
  Sex: Female
  Weight: 30 kg

DRUGS (13)
  1. TEDUGLUTIDE [Suspect]
     Active Substance: TEDUGLUTIDE
     Indication: Short-bowel syndrome
     Dosage: 2 MILLIGRAM, QD
  2. TEDUGLUTIDE [Suspect]
     Active Substance: TEDUGLUTIDE
     Dosage: 2.1 MILLIGRAM
  3. TEDUGLUTIDE [Suspect]
     Active Substance: TEDUGLUTIDE
     Dosage: 3 MILLIGRAM, QD
  4. TEDUGLUTIDE [Suspect]
     Active Substance: TEDUGLUTIDE
     Dosage: 3.1 MILLIGRAM, QD
     Dates: start: 20230315
  5. INTRALIPID [Concomitant]
     Active Substance: EGG PHOSPHOLIPIDS\GLYCERIN\SOYBEAN OIL
  6. GABAPENTIN [Concomitant]
     Active Substance: GABAPENTIN
  7. LOSARTAN POTASSIUM [Concomitant]
     Active Substance: LOSARTAN POTASSIUM
  8. SYNTHROID [Concomitant]
     Active Substance: LEVOTHYROXINE SODIUM
  9. CLONAZEPAM [Concomitant]
     Active Substance: CLONAZEPAM
  10. MIRTAZAPINE [Concomitant]
     Active Substance: MIRTAZAPINE
  11. TRAMADOL HCL [Concomitant]
     Active Substance: TRAMADOL HYDROCHLORIDE
  12. TYLENOL [Concomitant]
     Active Substance: ACETAMINOPHEN
  13. TPN [Concomitant]
     Active Substance: AMINO ACIDS\DEXTROSE\ELECTROLYTES NOS\SOYBEAN OIL

REACTIONS (5)
  - Diarrhoea [Recovering/Resolving]
  - Vascular device infection [Unknown]
  - Fistula [Unknown]
  - Weight fluctuation [Unknown]
  - Nausea [Unknown]
